FAERS Safety Report 4714156-4 (Version None)
Quarter: 2005Q3

REPORT INFORMATION
  Report Type: 
  Country: None (occurrence: None)
  Receive Date: 20050714
  Receipt Date: 20050704
  Transmission Date: 20060218
  Serious: Yes (Other)
  Sender: FDA-Public Use
  Company Number: 2005GB01287

PATIENT
  Age: 65 Year
  Sex: Female
  Weight: 90.5 kg

DRUGS (13)
  1. CRESTOR [Suspect]
     Indication: BLOOD CHOLESTEROL INCREASED
     Route: 048
     Dates: start: 20050603, end: 20050616
  2. CARTEOLOL HCL [Concomitant]
     Route: 047
  3. PARACETAMOL [Concomitant]
     Route: 048
  4. QUININE SULPHATE [Concomitant]
     Route: 048
  5. ISOSORBIDE MONONITRATE [Concomitant]
     Route: 048
  6. ZOPICLONE [Concomitant]
     Route: 048
  7. CLOPIDOGREL BISULFATE [Concomitant]
     Route: 048
  8. FUROSEMIDE [Concomitant]
     Route: 048
  9. GLYCERYL TRINITRATE [Concomitant]
     Route: 060
  10. DIGOXIN [Concomitant]
     Route: 048
  11. BISOPROLOL [Concomitant]
     Route: 048
  12. HYPROMELLOSE [Concomitant]
     Route: 047
  13. RAMIPRIL [Concomitant]
     Route: 048

REACTIONS (3)
  - CONTUSION [None]
  - DYSPEPSIA [None]
  - MYALGIA [None]
